FAERS Safety Report 9287844 (Version 4)
Quarter: 2013Q3

REPORT INFORMATION
  Report Type: Spontaneous
  Country: US (occurrence: US)
  Receive Date: 20130514
  Receipt Date: 20130729
  Transmission Date: 20140515
  Serious: No
  Sender: FDA-Public Use
  Company Number: US-PFIZER INC-2013146662

PATIENT
  Age: 65 Year
  Sex: Male
  Weight: 96.6 kg

DRUGS (30)
  1. INLYTA [Suspect]
     Indication: RENAL CANCER STAGE IV
     Dosage: 5 MG ORAL TABLET, TAKE ONE 5 MG TABLET ALONG WITH TWO 1 MG TABLETS PO BID
     Route: 048
     Dates: start: 20130410
  2. INLYTA [Suspect]
     Dosage: 1 MG ORAL TABLET, TAKE 2 ALONG WITH ONE 5 MG TABLET PO BID
     Route: 048
     Dates: start: 20130509
  3. ACETAMINOPHEN [Concomitant]
     Indication: CANCER PAIN
     Dosage: 500 MG, AS NEEDED
     Route: 048
  4. AZOPT [Concomitant]
     Indication: GLAUCOMA
     Dosage: 1 GTT, 2X/DAY
     Route: 047
     Dates: start: 20101230
  5. CHLORPHENIRAMINE MALEATE [Concomitant]
     Dosage: 4 MG, TAKE 1 TABLET EVERY 4 TO 6 HOURS AS NEEDED
     Route: 048
     Dates: start: 20120229
  6. FENTANYL [Concomitant]
     Indication: MALIGNANT NEOPLASM OF RENAL PELVIS
     Dosage: 25 MCG/HR, 1 PATCH EVERY 3 DAYS
     Route: 062
     Dates: start: 20120828
  7. FLUCONAZOLE [Concomitant]
     Indication: PNEUMONIA
     Dosage: 100 MG, 1X/DAY
     Route: 048
     Dates: start: 20120827
  8. FUROSEMIDE [Concomitant]
     Indication: OEDEMA
     Dosage: 40 MG, 1X/DAY
     Route: 048
     Dates: start: 20120705
  9. HYDROCODONE W/ACETAMINOPHEN [Concomitant]
     Indication: CANCER PAIN
     Dosage: HYDROCODONE 10/ACETAMINOPHEN-325 MG, TAKE 2 TO 2 TAB EVERY 4 HOURS AS NEEDED
     Route: 048
     Dates: start: 20130219
  10. HYDROCODONE W/ACETAMINOPHEN [Concomitant]
     Indication: PAIN
  11. HYDROCODONE/IBUPROFEN [Concomitant]
     Indication: PAIN
     Dosage: HYDROCODONE 7.5MG/IBUPROFEN 200MG, TAKE 1 TO 2 TABS EVERY 4 TO 6 HOURS AS NEEDED
     Route: 048
     Dates: start: 20130508
  12. HYDROCODONE/IBUPROFEN [Concomitant]
     Indication: CANCER PAIN
  13. IBUPROFEN [Concomitant]
     Indication: CANCER PAIN
     Dosage: 600 MG, AS NEEDED
     Route: 048
     Dates: start: 20110803
  14. LACTULOSE [Concomitant]
     Indication: CONSTIPATION
     Dosage: TAKE 30-60 ML Q 4 HOURS UNTIL BOWEL MOVEMENT, THEN 1-2 TIMES DAILY PRN
     Route: 048
     Dates: start: 20130508
  15. LEVOTHYROXINE SODIUM [Concomitant]
     Indication: HYPOTHYROIDISM
     Dosage: 125 UG, 1X/DAY
     Route: 048
     Dates: start: 20090202
  16. LEVOTHYROXINE SODIUM [Concomitant]
     Dosage: 25 UG, 1X/DAY
     Route: 048
     Dates: start: 20130405
  17. LEVOTHYROXINE SODIUM [Concomitant]
     Dosage: 200 UG, DAILY
     Route: 048
     Dates: start: 20090202
  18. MELATONIN [Concomitant]
     Indication: INSOMNIA
     Dosage: 300 UG, AS NEEDED
     Route: 048
  19. OMEPRAZOLE [Concomitant]
     Indication: RHINITIS ALLERGIC
     Dosage: 20 MG, 1X/DAY
     Route: 048
     Dates: start: 20120207
  20. OMEPRAZOLE [Concomitant]
     Indication: COUGH
  21. ONDANSETRON HYDROCHLORIDE [Concomitant]
     Indication: NAUSEA
     Dosage: 8 MG, 1 TABLET EVERY 8 HOURS POST CHEMOTHERAPY AS NEEDED
     Route: 048
     Dates: start: 20120629
  22. OSCAL 500-D [Concomitant]
     Indication: SUPPORTIVE CARE
     Dosage: 1 DF, 1X/DAY, CALCIUM 500/COLECALCIFEROL 200
  23. OXYCODONE HYDROCHLORIDE [Concomitant]
     Indication: CANCER PAIN
     Dosage: 5 MG, 1 TABLET EVERY 6 HOURS AS NEEDED
     Route: 048
     Dates: start: 20130123
  24. RANITIDINE HYDROCHLORIDE [Concomitant]
     Indication: SUPPORTIVE CARE
     Dosage: 150 MG, 2X/DAY
     Route: 048
     Dates: start: 20090302
  25. SIMVASTATIN [Concomitant]
     Indication: HYPERLIPIDAEMIA
     Dosage: 20 MG (HALF TABLET), 1X/DAY
     Route: 048
     Dates: start: 20111031
  26. SPIRONOLACTONE [Concomitant]
     Indication: OEDEMA
     Dosage: 50 MG, 1X/DAY
     Route: 048
     Dates: start: 20101230
  27. TERAZOSIN HYDROCHLORIDE [Concomitant]
     Indication: OBSTRUCTIVE UROPATHY
     Dosage: 5 MG, 1X/DAY
     Route: 048
     Dates: start: 20081111
  28. TIMOLOL MALEATE [Concomitant]
     Indication: GLAUCOMA
     Dosage: 1 DROP IN BOTH EYES EVERY 12 HOURS
     Route: 047
  29. ZIOPTAN [Concomitant]
     Dosage: 1 GTT, 1X/DAY
     Route: 047
  30. ZOLPIDEM TARTRATE [Concomitant]
     Indication: INSOMNIA
     Dosage: 10 MG, 1 TABLET AT BEDTIME
     Route: 048
     Dates: start: 20120207

REACTIONS (1)
  - Dysphonia [Unknown]
